FAERS Safety Report 6308391-1 (Version None)
Quarter: 2009Q3

REPORT INFORMATION
  Report Type: 
  Country: None (occurrence: None)
  Receive Date: 20090810
  Receipt Date: 20090731
  Transmission Date: 20100115
  Serious: Yes (Other)
  Sender: FDA-Public Use
  Company Number: 2009-201025-NL

PATIENT
  Sex: Male

DRUGS (1)
  1. REMERGIL (MIRTAZAPINE) (MIRTAZAPINE) [Suspect]
     Indication: DRUG USE FOR UNKNOWN INDICATION

REACTIONS (3)
  - CRIME [None]
  - ILLUSION [None]
  - OVERDOSE [None]
